FAERS Safety Report 7794956-7 (Version None)
Quarter: 2011Q4

REPORT INFORMATION
  Report Type: 
  Country: None (occurrence: None)
  Receive Date: 20111004
  Receipt Date: 20110928
  Transmission Date: 20120403
  Serious: Yes (Other)
  Sender: FDA-Public Use
  Company Number: US-BAXTER-2011BH030686

PATIENT
  Age: 35 Year
  Sex: Female

DRUGS (4)
  1. DOXORUBICIN HCL [Suspect]
     Indication: BREAST CANCER
     Route: 065
  2. CYCLOPHOSPHAMIDE [Suspect]
     Indication: BREAST CANCER
     Route: 065
  3. PACLITAXEL [Suspect]
     Indication: BREAST CANCER
     Route: 065
  4. NEUPOGEN [Concomitant]
     Indication: PRODUCT USED FOR UNKNOWN INDICATION
     Route: 065

REACTIONS (2)
  - MATERNAL EXPOSURE DURING PREGNANCY [None]
  - OLIGOHYDRAMNIOS [None]
